FAERS Safety Report 5889181-0 (Version None)
Quarter: 2008Q3

REPORT INFORMATION
  Report Type: 
  Country: None (occurrence: None)
  Receive Date: 20080917
  Receipt Date: 20080908
  Transmission Date: 20090109
  Serious: No
  Sender: FDA-Public Use
  Company Number: 20085570

PATIENT
  Sex: Male

DRUGS (1)
  1. LIORESAL [Suspect]
     Indication: MUSCLE SPASTICITY
     Dosage: DAILY, INTRATHECAL
     Route: 037

REACTIONS (11)
  - CONDITION AGGRAVATED [None]
  - CRYING [None]
  - DYSGEUSIA [None]
  - EMOTIONAL DISORDER [None]
  - FEELING OF BODY TEMPERATURE CHANGE [None]
  - HYPOPHAGIA [None]
  - ILL-DEFINED DISORDER [None]
  - MALAISE [None]
  - MUSCLE SPASTICITY [None]
  - PAROSMIA [None]
  - TREMOR [None]
